FAERS Safety Report 9343154 (Version 1)
Quarter: 2013Q2

REPORT INFORMATION
  Report Type: Spontaneous
  Country: JP (occurrence: JP)
  Receive Date: 20130611
  Receipt Date: 20130611
  Transmission Date: 20140414
  Serious: Yes (Other)
  Sender: FDA-Public Use
  Company Number: JP-PFIZER INC-2013147913

PATIENT
  Age: 47 Year
  Sex: Male
  Weight: 70 kg

DRUGS (3)
  1. CELECOX [Suspect]
     Indication: ANALGESIC THERAPY
     Dosage: 200 MG, 1X/DAY
     Route: 048
     Dates: start: 20120326, end: 20120408
  2. REBAMIPIDE [Concomitant]
     Dosage: UNK
     Route: 048
     Dates: start: 201204, end: 20120408
  3. MUCOSTA [Concomitant]
     Indication: PROPHYLAXIS
     Dosage: UNK

REACTIONS (5)
  - Rash generalised [Recovering/Resolving]
  - Pyrexia [Recovering/Resolving]
  - Generalised erythema [Recovering/Resolving]
  - Cardiac disorder [Unknown]
  - Nasopharyngitis [Recovering/Resolving]
